FAERS Safety Report 8195831-9 (Version None)
Quarter: 2012Q1

REPORT INFORMATION
  Report Type: 
  Country: None (occurrence: None)
  Receive Date: 20120308
  Receipt Date: 20120306
  Transmission Date: 20120608
  Serious: Yes (Death)
  Sender: FDA-Public Use
  Company Number: JP-PFIZER INC-2012060030

PATIENT

DRUGS (1)
  1. SOLU-CORTEF [Suspect]
     Indication: ORGANISING PNEUMONIA
     Dosage: 200 ML/DAY

REACTIONS (3)
  - NEUTROPHIL COUNT INCREASED [None]
  - WHITE BLOOD CELL COUNT INCREASED [None]
  - LYMPHOPENIA [None]
